FAERS Safety Report 4597918-6 (Version None)
Quarter: 2005Q1

REPORT INFORMATION
  Report Type: 
  Country: None (occurrence: None)
  Receive Date: 20050301
  Receipt Date: 20050223
  Transmission Date: 20050727
  Serious: Yes (Death)
  Sender: FDA-Public Use
  Company Number: 163-20785-05020056

PATIENT
  Age: 79 Year
  Sex: Male

DRUGS (1)
  1. THALOMID [Suspect]
     Indication: MYELODYSPLASTIC SYNDROME
     Dosage: 50 MG, DAILY, ORAL
     Route: 048
     Dates: start: 20050113

REACTIONS (2)
  - CARDIAC FAILURE CONGESTIVE [None]
  - RESPIRATORY FAILURE [None]
